FAERS Safety Report 17971839 (Version 1)
Quarter: 2020Q3

REPORT INFORMATION
  Report Type: Spontaneous
  Country: CA (occurrence: CA)
  Receive Date: 20200702
  Receipt Date: 20200702
  Transmission Date: 20201103
  Serious: Yes (Other)
  Sender: FDA-Public Use
  Company Number: CA-PFIZER INC-2020250298

PATIENT
  Age: 61 Year
  Sex: Male

DRUGS (2)
  1. NOREPINEPHRINE BITARTRATE. [Suspect]
     Active Substance: NOREPINEPHRINE BITARTRATE
     Dosage: UNK
     Route: 042
  2. PROPOFOL. [Suspect]
     Active Substance: PROPOFOL
     Dosage: UNK
     Route: 042

REACTIONS (5)
  - Sedation complication [Recovered/Resolved]
  - Haemorrhage [Recovered/Resolved]
  - Blood pressure decreased [Recovered/Resolved]
  - Underdose [Recovered/Resolved]
  - Device connection issue [Recovered/Resolved]
